FAERS Safety Report 5345823-X (Version None)
Quarter: 2007Q2

REPORT INFORMATION
  Report Type: 
  Country: None (occurrence: None)
  Receive Date: 20070430
  Receipt Date: 20070223
  Transmission Date: 20071010
  Serious: No
  Sender: FDA-Public Use
  Company Number: 261093

PATIENT
  Age: 42 Year
  Sex: Male

DRUGS (1)
  1. LEVEMIR [Suspect]
     Indication: DIABETES MELLITUS INSULIN-DEPENDENT
     Dosage: 17 IU, QD, SUBCUTANEOUS
     Route: 058
     Dates: start: 20070221, end: 20070222

REACTIONS (3)
  - INJECTION SITE ERYTHEMA [None]
  - INJECTION SITE INFLAMMATION [None]
  - INJECTION SITE PAIN [None]
